FAERS Safety Report 20547644 (Version 1)
Quarter: 2022Q1

REPORT INFORMATION
  Report Type: Report from Study
  Country: US (occurrence: None)
  Receive Date: 20220303
  Receipt Date: 20220303
  Transmission Date: 20220424
  Serious: Yes (Hospitalization, Other)
  Sender: FDA-Public Use
  Company Number: US-ROCHE-3001953

PATIENT
  Age: 63 Year
  Sex: Female
  Weight: 61.4 kg

DRUGS (1)
  1. ATEZOLIZUMAB [Suspect]
     Active Substance: ATEZOLIZUMAB
     Indication: Chondrosarcoma
     Dosage: LAST ADMINISTERED DATE 19-OCT-2021
     Route: 041
     Dates: start: 20210923

REACTIONS (4)
  - Hypersensitivity [Recovered/Resolved]
  - Dyspnoea [Unknown]
  - Muscle necrosis [Unknown]
  - Erythema [Unknown]

NARRATIVE: CASE EVENT DATE: 20211019
